FAERS Safety Report 19621045 (Version 1)
Quarter: 2021Q3

REPORT INFORMATION
  Report Type: Spontaneous
  Country: CN (occurrence: CN)
  Receive Date: 20210728
  Receipt Date: 20210728
  Transmission Date: 20211014
  Serious: Yes (Hospitalization)
  Sender: FDA-Public Use
  Company Number: CN-TERSERA THERAPEUTICS LLC-2021TRS003487

PATIENT

DRUGS (1)
  1. ZOLADEX [Suspect]
     Active Substance: GOSERELIN ACETATE
     Indication: OVARIAN CANCER
     Dosage: 3.6 MILLIGRAM, QD
     Route: 058
     Dates: start: 2020

REACTIONS (1)
  - Premature menopause [Not Recovered/Not Resolved]
